FAERS Safety Report 23548178 (Version 2)
Quarter: 2024Q1

REPORT INFORMATION
  Report Type: Spontaneous
  Country: US (occurrence: US)
  Receive Date: 20240221
  Receipt Date: 20240223
  Transmission Date: 20240410
  Serious: Yes (Hospitalization)
  Sender: FDA-Public Use
  Company Number: US-ROCHE-3508782

PATIENT
  Age: 19 Year
  Sex: Male

DRUGS (17)
  1. CAPECITABINE [Suspect]
     Active Substance: CAPECITABINE
     Indication: Hepatic cancer
     Route: 048
     Dates: start: 20210602
  2. CAPECITABINE [Suspect]
     Active Substance: CAPECITABINE
     Indication: Hepatocellular carcinoma
     Route: 048
     Dates: start: 20210602
  3. QUETIAPINE [Concomitant]
     Active Substance: QUETIAPINE
  4. OLANZAPINE [Concomitant]
     Active Substance: OLANZAPINE
  5. BUSPAR [Concomitant]
     Active Substance: BUSPIRONE HYDROCHLORIDE
  6. CELEBREX [Concomitant]
     Active Substance: CELECOXIB
  7. CELEXA [Concomitant]
     Active Substance: CITALOPRAM HYDROBROMIDE
  8. CLINDAGEL [Concomitant]
     Active Substance: CLINDAMYCIN PHOSPHATE
  9. LOTRIMIN [Concomitant]
     Active Substance: CLOTRIMAZOLE
  10. ZORTRESS [Concomitant]
     Active Substance: EVEROLIMUS
  11. NEURONTIN [Concomitant]
     Active Substance: GABAPENTIN
  12. SANCUSO [Concomitant]
     Active Substance: GRANISETRON
  13. ACCUTANE [Concomitant]
     Active Substance: ISOTRETINOIN
  14. REMERON [Concomitant]
     Active Substance: MIRTAZAPINE
  15. NARCAN [Concomitant]
     Active Substance: NALOXONE HYDROCHLORIDE
  16. PROTONIX [Concomitant]
     Active Substance: PANTOPRAZOLE SODIUM
  17. ACTIGALL [Concomitant]
     Active Substance: URSODIOL

REACTIONS (26)
  - Arthralgia [Unknown]
  - COVID-19 [Unknown]
  - Systemic candida [Unknown]
  - Abdominal pain [Unknown]
  - Haematemesis [Unknown]
  - Gastric ulcer haemorrhage [Unknown]
  - Gastrointestinal mucosa hyperaemia [Unknown]
  - Gastric mucosa erythema [Unknown]
  - Red blood cell count decreased [Unknown]
  - Haemoglobin decreased [Unknown]
  - Haematocrit decreased [Unknown]
  - Mean cell haemoglobin concentration decreased [Unknown]
  - Red cell distribution width increased [Unknown]
  - Monocyte count increased [Unknown]
  - Blood magnesium increased [Unknown]
  - Anion gap decreased [Unknown]
  - Blood glucose increased [Unknown]
  - Aspartate aminotransferase increased [Unknown]
  - Alanine aminotransferase increased [Unknown]
  - Blood alkaline phosphatase increased [Unknown]
  - pH urine increased [Unknown]
  - Hypoaesthesia [Unknown]
  - Off label use [Unknown]
  - Vomiting [Unknown]
  - Weight decreased [Unknown]
  - Nausea [Unknown]
